FAERS Safety Report 12604811 (Version 1)
Quarter: 2016Q3

REPORT INFORMATION
  Report Type: Spontaneous
  Country: AU (occurrence: AU)
  Receive Date: 20160728
  Receipt Date: 20160728
  Transmission Date: 20161109
  Serious: Yes (Hospitalization)
  Sender: FDA-Public Use
  Company Number: AU-009507513-1607AUS011534

PATIENT
  Age: 16 Year
  Sex: Female

DRUGS (1)
  1. ROCURONIUM BROMIDE. [Suspect]
     Active Substance: ROCURONIUM BROMIDE
     Dosage: UNKNOWN
     Dates: start: 20160719, end: 20160719

REACTIONS (3)
  - Urticaria [Unknown]
  - Erythema [Unknown]
  - Hypotension [Unknown]

NARRATIVE: CASE EVENT DATE: 20160719
